FAERS Safety Report 5352153-9 (Version None)
Quarter: 2007Q2

REPORT INFORMATION
  Report Type: 
  Country: None (occurrence: None)
  Receive Date: 20070611
  Receipt Date: 20070508
  Transmission Date: 20071010
  Serious: Yes (Other)
  Sender: FDA-Public Use
  Company Number: GB-NOVOPROD-263420

PATIENT
  Sex: Female

DRUGS (3)
  1. NOVOLOG MIX 70/30 [Suspect]
     Indication: DIABETES MELLITUS
     Dates: start: 20061101, end: 20070201
  2. HUMAN MIXTARD 30 HM(GE) [Suspect]
     Indication: DIABETES MELLITUS
     Dates: end: 20061101
  3. HUMAN MIXTARD 30 HM(GE) [Suspect]
     Dates: start: 20070201

REACTIONS (3)
  - BLOOD GLUCOSE FLUCTUATION [None]
  - INFECTION [None]
  - ULCER [None]
